FAERS Safety Report 10234913 (Version 1)
Quarter: 2014Q2

REPORT INFORMATION
  Report Type: Spontaneous
  Country: IT (occurrence: IT)
  Receive Date: 20140613
  Receipt Date: 20140613
  Transmission Date: 20141212
  Serious: Yes (Other)
  Sender: FDA-Public Use
  Company Number: IT-TEVA-488351ISR

PATIENT
  Age: 23 Year
  Sex: Male

DRUGS (3)
  1. CISPLATIN [Suspect]
     Indication: UNDIFFERENTIATED NASOPHARYNGEAL CARCINOMA
     Dosage: 3 CYCLES EVERY 3 WEEKS
  2. DOCETAXEL [Suspect]
     Indication: UNDIFFERENTIATED NASOPHARYNGEAL CARCINOMA
  3. 5-FLUOROURACIL [Suspect]
     Indication: UNDIFFERENTIATED NASOPHARYNGEAL CARCINOMA

REACTIONS (2)
  - Mucosal inflammation [Unknown]
  - Odynophagia [Unknown]
